FAERS Safety Report 5074754-8 (Version None)
Quarter: 2006Q3

REPORT INFORMATION
  Report Type: 
  Country: None (occurrence: None)
  Receive Date: 20060804
  Receipt Date: 20060724
  Transmission Date: 20061208
  Serious: Yes (Death, Other)
  Sender: FDA-Public Use
  Company Number: 29128

PATIENT
  Age: 13 Year
  Sex: Female

DRUGS (1)
  1. BLEOMYCIN [Suspect]
     Indication: BONE SARCOMA

REACTIONS (2)
  - GASTRIC CANCER [None]
  - TREATMENT RELATED SECONDARY MALIGNANCY [None]
